FAERS Safety Report 15703201 (Version 6)
Quarter: 2019Q2

REPORT INFORMATION
  Report Type: Spontaneous
  Country: US (occurrence: US)
  Receive Date: 20181210
  Receipt Date: 20190405
  Transmission Date: 20190711
  Serious: Yes (Other)
  Sender: FDA-Public Use
  Company Number: US-AMGEN-USASP2018174588

PATIENT
  Age: 1 Year
  Sex: Male
  Weight: 14 kg

DRUGS (28)
  1. EPOGEN [Suspect]
     Active Substance: ERYTHROPOIETIN
     Indication: NEPHROGENIC ANAEMIA
     Dosage: 600 UNIT, 2 TIMES/WK (0.3 ML OF 2000 UNITS/ML, ON TUESDAY AND FRIDAY)
     Route: 042
     Dates: start: 20180824, end: 20180904
  2. EPOGEN [Suspect]
     Active Substance: ERYTHROPOIETIN
     Dosage: 3000 UNIT, 2 TIMES/WK (0.3 ML OF 10000 UNITS/ML, ON TUESDAY AND FRIDAY)
     Route: 058
     Dates: start: 20181009, end: 20181130
  3. METOPROLOL. [Concomitant]
     Active Substance: METOPROLOL
     Dosage: 0.5 MILLILITER, BID (GT TUBE)
     Route: 048
  4. EPOGEN [Suspect]
     Active Substance: ERYTHROPOIETIN
     Dosage: 4000 UNIT, 3 TIMES/WK (0.4 ML OF 10000 UNITS/ML, ON MONDAY, WEDNESDAY, FRIDAY)
     Route: 058
     Dates: start: 20181203
  5. FLUTICASONE PROPIONATE. [Concomitant]
     Active Substance: FLUTICASONE PROPIONATE
     Dosage: 44 MICROGRAM, BID (2 PUFF(S))
  6. MELATONIN [Concomitant]
     Active Substance: MELATONIN
     Dosage: 1 MILLIGRAM, QHS, PRN
     Route: 048
  7. IPRATROPIUM [Concomitant]
     Active Substance: IPRATROPIUM
     Dosage: 0.02 PERCENT, Q12H
  8. RENVELA [Concomitant]
     Active Substance: SEVELAMER CARBONATE
     Dosage: 1600 MILLIGRAM, QD (GT TUBE)
     Route: 048
  9. FLUCONAZOLE. [Concomitant]
     Active Substance: FLUCONAZOLE
     Dosage: 64 MILLIGRAM, QD (40 MG/MLL)
     Route: 048
  10. SIMETHICONE (DIMETHICONE) [Concomitant]
     Active Substance: DIMETHICONE
     Dosage: 40 MILLIGRAM, QID
     Route: 048
  11. SILDENAFIL. [Concomitant]
     Active Substance: SILDENAFIL
     Dosage: 1 MILLILITER, TID
     Route: 048
  12. AMLODIPINE [Concomitant]
     Active Substance: AMLODIPINE BESYLATE
     Dosage: 0.9 MILLIGRAM, BID
     Route: 048
  13. VITAMIN D3 [Concomitant]
     Active Substance: CHOLECALCIFEROL
     Dosage: 400 UNIT, QD (400 UNITS/4 DROPS)
     Route: 048
  14. EPOETIN ALFA [Suspect]
     Active Substance: ERYTHROPOIETIN
     Indication: NEPHROGENIC ANAEMIA
     Dosage: UNK
     Route: 065
     Dates: start: 201804, end: 2018
  15. LOPERAMIDE [Concomitant]
     Active Substance: LOPERAMIDE
     Dosage: 1 MILLIGRAM, TID (GT)
     Route: 048
  16. SODIUM BICARBONATE. [Concomitant]
     Active Substance: SODIUM BICARBONATE
     Dosage: 10 MILLIEQUIVALENT, TID (JTUBE)
     Route: 048
  17. FLUTICASONE. [Concomitant]
     Active Substance: FLUTICASONE
     Dosage: UNK UNK, BID (1 SPRAY(S) BOTH NOSTRILS)
     Route: 045
  18. EPOGEN [Suspect]
     Active Substance: ERYTHROPOIETIN
     Dosage: 1500 UNIT, 2 TIMES/WK (0.15 ML OF 10000 UNITS/ML, ON TUESDAY AND FRIDAY)
     Route: 058
     Dates: start: 20180907, end: 20180926
  19. EPOGEN [Suspect]
     Active Substance: ERYTHROPOIETIN
     Dosage: 2000 UNIT, 2 TIMES/WK (0.2 ML OF 10000 UNITS/ML, ON TUESDAY AND FRIDAY)
     Route: 058
     Dates: start: 20181002, end: 20181005
  20. AZATHIOPRINE. [Concomitant]
     Active Substance: AZATHIOPRINE
     Dosage: 15 MG/DL, QD
     Route: 048
  21. TACROLIMUS. [Concomitant]
     Active Substance: TACROLIMUS
     Dosage: 0.35 MILLIGRAM, Q12H
     Route: 048
  22. SODIUM CHLORIDE. [Concomitant]
     Active Substance: SODIUM CHLORIDE
     Dosage: UNK, 0.9% FLUSH 10 ML SYRINGE
     Route: 042
  23. ARTIFICIAL TEARS [HYPROMELLOSE] [Concomitant]
     Indication: DRY EYE
     Dosage: UNK UNK, AS NECESSARY
  24. ACETAMINOPHEN. [Concomitant]
     Active Substance: ACETAMINOPHEN
     Dosage: 155 MILLIGRAM, Q4H (ADMINISTERED 1 TIMES IN PAST 24 HRS)
     Route: 048
  25. ISRADIPINE. [Concomitant]
     Active Substance: ISRADIPINE
     Dosage: 1.5 MILLILITER, Q6H (GT TUBE)
  26. LEVALBUTEROL [LEVOSALBUTAMOL] [Concomitant]
     Dosage: 0.63 MILLIGRAM, Q12H
  27. CALCITRIOL. [Concomitant]
     Active Substance: CALCITRIOL
     Dosage: 0.25 MICROGRAM
     Route: 048
  28. RANITIDINE. [Concomitant]
     Active Substance: RANITIDINE
     Dosage: 2 MILLILITER, BID

REACTIONS (12)
  - Aplasia pure red cell [Not Recovered/Not Resolved]
  - Gastrostomy [Unknown]
  - Otitis media [Unknown]
  - Gastroenterostomy [Unknown]
  - Hypovolaemia [Unknown]
  - Therapy non-responder [Not Recovered/Not Resolved]
  - Diarrhoea [Unknown]
  - Dystonia [Unknown]
  - Electrolyte imbalance [Unknown]
  - Tympanic membrane disorder [Unknown]
  - Deep vein thrombosis [Unknown]
  - Cushingoid [Unknown]

NARRATIVE: CASE EVENT DATE: 2018
